FAERS Safety Report 13685198 (Version 1)
Quarter: 2017Q2

REPORT INFORMATION
  Report Type: Spontaneous
  Country: US (occurrence: US)
  Receive Date: 20170623
  Receipt Date: 20170623
  Transmission Date: 20170830
  Serious: No
  Sender: FDA-Public Use
  Company Number: US-GLAXOSMITHKLINE-US2017096401

PATIENT
  Age: 74 Year
  Sex: Male

DRUGS (4)
  1. ANORO ELLIPTA [Suspect]
     Active Substance: UMECLIDINIUM BROMIDE\VILANTEROL TRIFENATATE
     Indication: CHRONIC OBSTRUCTIVE PULMONARY DISEASE
     Dosage: 1 PUFF(S), QD
     Route: 055
     Dates: start: 201704
  2. AZELASTINE [Concomitant]
     Active Substance: AZELASTINE
  3. FLOVENT DISKUS [Suspect]
     Active Substance: FLUTICASONE PROPIONATE
     Indication: PRODUCT USED FOR UNKNOWN INDICATION
     Dosage: 2 PUFF(S), BID
     Route: 055
  4. FLUTICASONE PROPIONATE NASAL SPRAY [Concomitant]
     Active Substance: FLUTICASONE PROPIONATE
     Dosage: 2 DF, QD
     Route: 045

REACTIONS (4)
  - Oropharyngeal pain [Recovered/Resolved]
  - Dysphonia [Recovered/Resolved]
  - Wrong technique in device usage process [Unknown]
  - Cough [Unknown]

NARRATIVE: CASE EVENT DATE: 201706
